FAERS Safety Report 14502531 (Version 1)
Quarter: 2018Q1

REPORT INFORMATION
  Report Type: Spontaneous
  Country: US (occurrence: US)
  Receive Date: 20180208
  Receipt Date: 20180208
  Transmission Date: 20180509
  Serious: No
  Sender: FDA-Public Use
  Company Number: US-AUROBINDO-AUR-APL-2017-00102

PATIENT
  Age: 2 Year
  Sex: Female
  Weight: 12.25 kg

DRUGS (1)
  1. AMOXICILLIN AND CLAVULANATEPOTASSIUMFORORALSUSPENSIONUSP600/42.9MG/5ML [Suspect]
     Active Substance: AMOXICILLIN\CLAVULANATE POTASSIUM
     Indication: PRODUCT USED FOR UNKNOWN INDICATION
     Dosage: 4 ML, TWO TIMES A DAY FOR 10 DAYS
     Route: 048
     Dates: start: 20161222

REACTIONS (3)
  - Initial insomnia [Recovering/Resolving]
  - Mydriasis [Recovering/Resolving]
  - Muscle twitching [Recovering/Resolving]

NARRATIVE: CASE EVENT DATE: 20161225
